FAERS Safety Report 24015976 (Version 1)
Quarter: 2024Q2

REPORT INFORMATION
  Report Type: Report from Study
  Country: KR (occurrence: KR)
  Receive Date: 20240626
  Receipt Date: 20240626
  Transmission Date: 20240716
  Serious: Yes (Life-Threatening, Other)
  Sender: FDA-Public Use
  Company Number: KR-PFIZER INC-PV202400083388

PATIENT
  Sex: Male

DRUGS (3)
  1. SIROLIMUS [Suspect]
     Active Substance: SIROLIMUS
     Indication: Haemangioma of liver
     Dosage: UNK, (FROM THE 30 DAY TILL DAY 37 AFTER BIRTH)
  2. PREDNISOLONE [Concomitant]
     Active Substance: PREDNISOLONE
     Indication: Haemangioma of liver
     Dosage: UNK (FROM THE THIRTEENTH DAY TILL DAY 57 AFTER BIRTH)
  3. PROPRANOLOL [Concomitant]
     Active Substance: PROPRANOLOL HYDROCHLORIDE
     Indication: Haemangioma of liver
     Dosage: UNK (SEVENTH DAY AFTER BIRTH TILL DAY 60 AFTER BIRTH)
     Route: 048

REACTIONS (2)
  - Septic shock [Recovered/Resolved]
  - Impaired healing [Recovered/Resolved]
